FAERS Safety Report 6612134-1 (Version None)
Quarter: 2010Q1

REPORT INFORMATION
  Report Type: 
  Country: None (occurrence: None)
  Receive Date: 20100302
  Receipt Date: 20100302
  Transmission Date: 20100710
  Serious: Yes (Life-Threatening)
  Sender: FDA-Public Use
  Company Number: None

PATIENT
  Age: 77 Year
  Sex: Female
  Weight: 78.01 kg

DRUGS (1)
  1. LEXISCAN [Suspect]
     Indication: DIAGNOSTIC PROCEDURE
     Dosage: 0.4MG X1 IV BOLUS
     Route: 040
     Dates: start: 20100301, end: 20100301

REACTIONS (2)
  - BRADYCARDIA [None]
  - CARDIAC ARREST [None]
